FAERS Safety Report 19608854 (Version 1)
Quarter: 2021Q3

REPORT INFORMATION
  Report Type: Spontaneous
  Country: US (occurrence: US)
  Receive Date: 20210724
  Receipt Date: 20210724
  Transmission Date: 20211014
  Serious: No
  Sender: FDA-Public Use
  Company Number: None

PATIENT
  Age: 40 Year
  Sex: Female
  Weight: 123.3 kg

DRUGS (12)
  1. FENOFIBRATE TABLETS, USP 160 MG [Suspect]
     Active Substance: FENOFIBRATE
     Indication: BLOOD TRIGLYCERIDES INCREASED
     Dosage: ?          QUANTITY:1 TABLET(S);?
     Route: 048
     Dates: start: 20210629, end: 20210724
  2. LANCETS [Concomitant]
     Active Substance: DEVICE
  3. DIABETIC TESTING KIT [Concomitant]
  4. FISH OIL [Concomitant]
     Active Substance: FISH OIL
  5. BENAZEPRIL [Concomitant]
     Active Substance: BENAZEPRIL HYDROCHLORIDE
  6. DIGESTIVE ADVANTAGE PROBIOTIC GUMMY [Concomitant]
  7. METOPOROL TARTRATE [Concomitant]
  8. RELPAX [Concomitant]
     Active Substance: ELETRIPTAN HYDROBROMIDE
  9. TEST STRIPS [Concomitant]
     Active Substance: DEVICE
  10. PRAVASTATIN. [Concomitant]
     Active Substance: PRAVASTATIN
  11. VIT D [Concomitant]
     Active Substance: VITAMIN D NOS
  12. OLLY WOMEN^S MULTI GUMMY [Concomitant]

REACTIONS (3)
  - Diarrhoea [None]
  - Product substitution issue [None]
  - Gastrointestinal sounds abnormal [None]

NARRATIVE: CASE EVENT DATE: 20210629
